FAERS Safety Report 13780735 (Version 4)
Quarter: 2017Q3

REPORT INFORMATION
  Report Type: Spontaneous
  Country: US (occurrence: US)
  Receive Date: 20170724
  Receipt Date: 20170905
  Transmission Date: 20171127
  Serious: No
  Sender: FDA-Public Use
  Company Number: US-PFIZER INC-2017317733

PATIENT
  Age: 41 Year
  Sex: Female

DRUGS (1)
  1. ADVIL [Suspect]
     Active Substance: IBUPROFEN
     Indication: PREMENSTRUAL SYNDROME
     Dosage: 1 DF, UNK
     Dates: start: 20170710

REACTIONS (4)
  - Product physical issue [Recovered/Resolved]
  - Poor quality drug administered [Recovered/Resolved]
  - Drug ineffective [Recovered/Resolved]
  - Intentional product misuse [Unknown]

NARRATIVE: CASE EVENT DATE: 20170710
